FAERS Safety Report 24045445 (Version 1)
Quarter: 2024Q3

REPORT INFORMATION
  Report Type: Spontaneous
  Country: IN (occurrence: IN)
  Receive Date: 20240703
  Receipt Date: 20240703
  Transmission Date: 20241017
  Serious: Yes (Other)
  Sender: ROCHE
  Company Number: IN-002147023-NVSC2024IN133854

PATIENT
  Sex: Male

DRUGS (1)
  1. RANIBIZUMAB [Suspect]
     Active Substance: RANIBIZUMAB
     Indication: Retinal vein occlusion
     Dosage: UNK
     Route: 050
     Dates: start: 20240413

REACTIONS (5)
  - Cataract nuclear [Unknown]
  - Retinal haemorrhage [Unknown]
  - Choroidal neovascularisation [Unknown]
  - Maculopathy [Unknown]
  - Visual impairment [Unknown]
